FAERS Safety Report 10249478 (Version 1)
Quarter: 2014Q2

REPORT INFORMATION
  Report Type: Report from Study
  Country: AU (occurrence: None)
  Receive Date: 20140618
  Receipt Date: 20140618
  Transmission Date: 20141212
  Serious: Yes (Other)
  Sender: FDA-Public Use
  Company Number: 2014-19726

PATIENT
  Age: 83 Year
  Sex: Female

DRUGS (1)
  1. EYLEA (AFLIBERCEPT) INJECTION)AFLIBERCEPT) [Suspect]
     Indication: AGE-RELATED MACULAR DEGENERATION
     Dosage: Q3MON
     Route: 031

REACTIONS (4)
  - Gastrointestinal carcinoma [None]
  - Fatigue [None]
  - Anaemia [None]
  - Inappropriate schedule of drug administration [None]
